FAERS Safety Report 9805728 (Version 1)
Quarter: 2014Q1

REPORT INFORMATION
  Report Type: Spontaneous
  Country: US (occurrence: None)
  Receive Date: 20140108
  Receipt Date: 20140108
  Transmission Date: 20141002
  Serious: Yes (Hospitalization)
  Sender: FDA-Public Use
  Company Number: None

PATIENT
  Age: 65 Year
  Sex: Male
  Weight: 103.8 kg

DRUGS (2)
  1. QUETIAPINE [Suspect]
     Indication: BIPOLAR DISORDER
     Dosage: MG
     Route: 048
     Dates: start: 20130923, end: 20131023
  2. QUETIAPINE [Suspect]
     Indication: MANIA
     Dosage: MG
     Route: 048
     Dates: start: 20130923, end: 20131023

REACTIONS (5)
  - Agitation [None]
  - Anger [None]
  - Aggression [None]
  - Insomnia [None]
  - Aggression [None]
